FAERS Safety Report 9847478 (Version 1)
Quarter: 2014Q1

REPORT INFORMATION
  Report Type: Report from Study
  Country: US (occurrence: US)
  Receive Date: 20140127
  Receipt Date: 20140127
  Transmission Date: 20141002
  Serious: Yes (Other)
  Sender: FDA-Public Use
  Company Number: US-ROCHE-1335690

PATIENT
  Age: 12 Year
  Sex: Female
  Weight: 16.75 kg

DRUGS (3)
  1. NUTROPIN AQ [Suspect]
     Indication: GROWTH HORMONE DEFICIENCY
     Dosage: EVERY DAY
     Route: 058
     Dates: start: 201301, end: 201306
  2. NUTROPIN AQ [Suspect]
     Dosage: EVERY DAY
     Route: 058
     Dates: start: 201306, end: 20131004
  3. NUTROPIN AQ [Suspect]
     Dosage: EVERY DAY
     Route: 058
     Dates: start: 20131004

REACTIONS (1)
  - Scoliosis [Unknown]
